FAERS Safety Report 6203501-9 (Version None)
Quarter: 2009Q2

REPORT INFORMATION
  Report Type: 
  Country: None (occurrence: None)
  Receive Date: 20090527
  Receipt Date: 20090518
  Transmission Date: 20091009
  Serious: Yes (Hospitalization)
  Sender: FDA-Public Use
  Company Number: PHHY2009GB05038

PATIENT
  Sex: Female
  Weight: 49.7 kg

DRUGS (5)
  1. ACLASTA [Suspect]
     Indication: OSTEOPOROSIS
     Dosage: 5 MG
     Dates: start: 20080222
  2. ACLASTA [Suspect]
     Dosage: UNK
     Dates: start: 20081201
  3. FENTANYL [Concomitant]
     Indication: PAIN
     Route: 061
  4. OMEPRAZOLE [Concomitant]
     Indication: OESOPHAGEAL SQUAMOUS CELL CARCINOMA
     Route: 048
  5. CYCLIZINE [Concomitant]
     Indication: NAUSEA
     Dosage: PRN
     Route: 048

REACTIONS (3)
  - DIARRHOEA [None]
  - DYSPNOEA [None]
  - RESPIRATORY FAILURE [None]
